FAERS Safety Report 8050563-2 (Version None)
Quarter: 2012Q1

REPORT INFORMATION
  Report Type: 
  Country: None (occurrence: None)
  Receive Date: 20120117
  Receipt Date: 20120116
  Transmission Date: 20120608
  Serious: Yes (Hospitalization, Other)
  Sender: FDA-Public Use
  Company Number: US-PFIZER INC-2011091420

PATIENT
  Sex: Female
  Weight: 56.236 kg

DRUGS (8)
  1. EFFEXOR XR [Suspect]
     Indication: DEPRESSION
     Dosage: UNK
     Dates: start: 20010101
  2. EFFEXOR XR [Suspect]
     Indication: PANIC ATTACK
     Dosage: 150 MG, 1X/DAY
     Route: 048
     Dates: start: 20010101, end: 20110401
  3. OXYCODONE [Concomitant]
     Indication: ARTHROPATHY
     Dosage: 30 MG, 3X/DAY
  4. VALIUM [Concomitant]
     Indication: ANXIETY
  5. VALIUM [Concomitant]
     Indication: MUSCLE RELAXANT THERAPY
     Dosage: 5 MG, 2X/DAY
  6. FENTANYL [Concomitant]
     Indication: PAIN
     Dosage: 100 MG, UNK
     Route: 062
  7. OXYCODONE [Concomitant]
     Indication: PAIN
  8. KEPPRA [Concomitant]
     Indication: CONVULSION
     Dosage: UNK

REACTIONS (5)
  - COGNITIVE DISORDER [None]
  - PANIC ATTACK [None]
  - CONFUSIONAL STATE [None]
  - CHOLECYSTECTOMY [None]
  - DEPRESSION [None]
